FAERS Safety Report 5325476-7 (Version None)
Quarter: 2007Q2

REPORT INFORMATION
  Report Type: 
  Country: None (occurrence: None)
  Receive Date: 20070515
  Receipt Date: 20070503
  Transmission Date: 20071010
  Serious: Yes (Hospitalization, Other)
  Sender: FDA-Public Use
  Company Number: FR-PFIZER INC-2007016873

PATIENT
  Sex: Male
  Weight: 98 kg

DRUGS (12)
  1. NEURONTIN [Suspect]
     Indication: NEURALGIA
  2. LYRICA [Suspect]
     Indication: NEURALGIA
  3. METFORMIN HCL [Concomitant]
  4. ACTOS [Concomitant]
  5. PREVISCAN [Concomitant]
  6. KARDEGIC [Concomitant]
  7. CARDENSIEL [Concomitant]
  8. PERINDOPRIL ERBUMINE [Concomitant]
  9. EFFEXOR [Concomitant]
  10. NEXIUM [Concomitant]
  11. TRAMADOL HCL [Concomitant]
  12. RIVOTRIL [Concomitant]

REACTIONS (4)
  - DRY EYE [None]
  - NEUROPATHY PERIPHERAL [None]
  - SJOGREN'S SYNDROME [None]
  - VISUAL ACUITY REDUCED [None]
